FAERS Safety Report 6984822-9 (Version None)
Quarter: 2010Q3

REPORT INFORMATION
  Report Type: 
  Country: None (occurrence: None)
  Receive Date: 20100913
  Receipt Date: 20100901
  Transmission Date: 20110219
  Serious: Yes (Hospitalization)
  Sender: FDA-Public Use
  Company Number: ACO_01576_2010

PATIENT
  Age: 61 Year
  Sex: Male
  Weight: 54.4316 kg

DRUGS (8)
  1. AMPYRA [Suspect]
     Indication: GAIT DISTURBANCE
     Dosage: (10 MG BID ORAL)
     Route: 048
     Dates: start: 20100601
  2. COPAXONE [Concomitant]
  3. BACLOFEN [Concomitant]
  4. ASPIRIN [Concomitant]
  5. SIMVASTATIN [Concomitant]
  6. METOPROLOL TARTRATE [Concomitant]
  7. AMLODIPINE [Concomitant]
  8. PLAVIX [Concomitant]

REACTIONS (1)
  - URINARY TRACT INFECTION [None]
